FAERS Safety Report 6209375-4 (Version None)
Quarter: 2009Q2

REPORT INFORMATION
  Report Type: 
  Country: None (occurrence: None)
  Receive Date: 20090529
  Receipt Date: 20090518
  Transmission Date: 20091009
  Serious: Yes (Other)
  Sender: FDA-Public Use
  Company Number: PHHY2009IE11314

PATIENT
  Sex: Female
  Weight: 93.2 kg

DRUGS (10)
  1. CLOZARIL [Suspect]
     Indication: SCHIZOPHRENIA
     Dosage: 350MG DAILY
     Dates: start: 19950928
  2. CLOZARIL [Suspect]
     Dosage: 350 MG/DAY
     Dates: start: 20070205
  3. CRESTOR [Concomitant]
     Dosage: 10 MG, QHS
  4. GLUCOPHAGE [Concomitant]
     Dosage: 850 MG, TID
  5. PERINDOPRIL ERBUMINE [Concomitant]
     Dosage: 5 MG, QD
  6. ASPIRIN [Concomitant]
     Dosage: 75 MG, QD
  7. AMISULPRIDE [Concomitant]
     Dosage: 300 MG, QD
     Route: 048
     Dates: start: 20090203
  8. FLUOXETINE HCL [Concomitant]
     Dosage: 20 MG, QD
     Route: 048
     Dates: start: 20090203
  9. ZOPICLONE [Concomitant]
     Dosage: 3.75 MG
     Route: 048
  10. BUSCOPAN [Concomitant]
     Dosage: UNK
     Route: 048

REACTIONS (7)
  - ANTIPSYCHOTIC DRUG LEVEL INCREASED [None]
  - BREAST CANCER STAGE I [None]
  - BREAST MASS [None]
  - HYPERCHOLESTEROLAEMIA [None]
  - HYPERTENSION [None]
  - SALIVARY HYPERSECRETION [None]
  - TYPE 2 DIABETES MELLITUS [None]
